FAERS Safety Report 9036783 (Version 1)
Quarter: 2013Q1

REPORT INFORMATION
  Report Type: Report from Study
  Country: US (occurrence: US)
  Receive Date: 20130129
  Receipt Date: 20130129
  Transmission Date: 20140127
  Serious: No
  Sender: FDA-Public Use
  Company Number: US-ABBOTT-12P-163-0890258-00

PATIENT
  Age: 25 Year
  Sex: Female

DRUGS (6)
  1. HUMIRA 40 MG/0.8 ML PEN [Suspect]
     Indication: CROHN^S DISEASE
     Dates: start: 20111210, end: 20111210
  2. HUMIRA 40 MG/0.8 ML PEN [Suspect]
     Dates: start: 20111224, end: 20111224
  3. HUMIRA 40 MG/0.8 ML PEN [Suspect]
  4. PERCOCET [Concomitant]
     Indication: PAIN
  5. BUPROPION [Concomitant]
     Indication: DEPRESSION
  6. CITALOPRAM [Concomitant]
     Indication: DEPRESSION

REACTIONS (4)
  - Headache [Unknown]
  - Nasal congestion [Unknown]
  - Diarrhoea [Unknown]
  - Faecal incontinence [Unknown]
